FAERS Safety Report 11793128 (Version 1)
Quarter: 2015Q4

REPORT INFORMATION
  Report Type: Spontaneous
  Country: US (occurrence: None)
  Receive Date: 20151201
  Receipt Date: 20151201
  Transmission Date: 20160305
  Serious: Yes (Other)
  Sender: FDA-Public Use
  Company Number: None

PATIENT
  Sex: Male

DRUGS (1)
  1. CAPECITABINE 500 MG TEVA [Suspect]
     Active Substance: CAPECITABINE
     Indication: COLORECTAL CANCER
     Dosage: 3  CAPSULES QAM + 4 CAPSULES QPM
     Route: 048
     Dates: start: 20150925

REACTIONS (2)
  - Palmar-plantar erythrodysaesthesia syndrome [None]
  - Dry skin [None]
